FAERS Safety Report 5227346-1 (Version None)
Quarter: 2007Q1

REPORT INFORMATION
  Report Type: 
  Country: None (occurrence: None)
  Receive Date: 20070130
  Receipt Date: 20070115
  Transmission Date: 20070707
  Serious: Yes (Hospitalization)
  Sender: FDA-Public Use
  Company Number: D-07-0006

PATIENT
  Age: 81 Year
  Sex: Male
  Weight: 51.2565 kg

DRUGS (12)
  1. WARFARIN SODIUM [Suspect]
     Indication: PULMONARY EMBOLISM
     Dosage: SEE IMAGE
     Dates: start: 20070111
  2. JANTOVEN [Suspect]
     Indication: PULMONARY EMBOLISM
     Dosage: 5 MG, PO QD
     Route: 048
     Dates: start: 20070105, end: 20070107
  3. LEVOTHYROXINE SODIUM [Concomitant]
  4. FELODIPINE [Concomitant]
  5. METOPROLOL TARTRATE [Concomitant]
  6. CAPOTEN [Concomitant]
  7. ENTOCORT [Concomitant]
  8. OMEPRAZOLE [Concomitant]
  9. LOMOTIL [Concomitant]
  10. CALCIUIM [Concomitant]
  11. VITAMIN D [Concomitant]
  12. VITAMIN E [Concomitant]

REACTIONS (3)
  - INTERNATIONAL NORMALISED RATIO INCREASED [None]
  - MALABSORPTION [None]
  - PROTHROMBIN TIME PROLONGED [None]
